FAERS Safety Report 15074748 (Version 1)
Quarter: 2018Q2

REPORT INFORMATION
  Report Type: Spontaneous
  Country: US (occurrence: US)
  Receive Date: 20180627
  Receipt Date: 20180627
  Transmission Date: 20180711
  Serious: No
  Sender: FDA-Public Use
  Company Number: US-SAOL THERAPEUTICS-2017SAO01256

PATIENT
  Sex: Male

DRUGS (2)
  1. DILAUDID [Suspect]
     Active Substance: HYDROMORPHONE HYDROCHLORIDE
     Dosage: UNK MG, \DAY
     Route: 037
  2. BACLOFEN. [Suspect]
     Active Substance: BACLOFEN
     Indication: MUSCLE SPASTICITY
     Dosage: UNK ?G/ML, \DAY
     Route: 037

REACTIONS (3)
  - Device alarm issue [Unknown]
  - Sensory disturbance [Unknown]
  - Nausea [Unknown]

NARRATIVE: CASE EVENT DATE: 20170719
